FAERS Safety Report 7893348-X (Version None)
Quarter: 2011Q4

REPORT INFORMATION
  Report Type: 
  Country: None (occurrence: None)
  Receive Date: 20111104
  Receipt Date: 20111025
  Transmission Date: 20120403
  Serious: Yes (Hospitalization)
  Sender: FDA-Public Use
  Company Number: GB-ROCHE-462209

PATIENT
  Age: 24 Year
  Sex: Female

DRUGS (1)
  1. ISOTRETINOIN [Suspect]
     Indication: ACNE CYSTIC
     Route: 048

REACTIONS (8)
  - ANAL ULCER [None]
  - DIARRHOEA [None]
  - ABDOMINAL PAIN UPPER [None]
  - ANAEMIA FOLATE DEFICIENCY [None]
  - ANAEMIA VITAMIN B12 DEFICIENCY [None]
  - NEUTROPENIA [None]
  - VOMITING [None]
  - COLITIS [None]
